FAERS Safety Report 24467368 (Version 1)
Quarter: 2024Q4

REPORT INFORMATION
  Report Type: Spontaneous
  Country: US (occurrence: US)
  Receive Date: 20241018
  Receipt Date: 20241018
  Transmission Date: 20250115
  Serious: No
  Sender: ROCHE
  Company Number: US-ROCHE-3556331

PATIENT
  Sex: Female
  Weight: 81.65 kg

DRUGS (1)
  1. XOLAIR [Suspect]
     Active Substance: OMALIZUMAB
     Indication: Urticaria chronic
     Dosage: 150 MG INJECTION IN EACH ARM
     Route: 058
     Dates: start: 202111

REACTIONS (3)
  - Injection site reaction [Not Recovered/Not Resolved]
  - Erythema [Unknown]
  - Injection site warmth [Unknown]

NARRATIVE: CASE EVENT DATE: 20240430
